APPROVED DRUG PRODUCT: PREDNISONE
Active Ingredient: PREDNISONE
Strength: 10MG
Dosage Form/Route: TABLET;ORAL
Application: A213386 | Product #001 | TE Code: AB
Applicant: AMNEAL EU LTD
Approved: Jun 24, 2020 | RLD: No | RS: No | Type: RX